FAERS Safety Report 24658748 (Version 1)
Quarter: 2024Q4

REPORT INFORMATION
  Report Type: Spontaneous
  Country: US (occurrence: None)
  Receive Date: 20241122
  Receipt Date: 20241122
  Transmission Date: 20250114
  Serious: Yes (Hospitalization)
  Sender: Public
  Company Number: None

PATIENT
  Sex: Female

DRUGS (2)
  1. TERIPARATIDE [Suspect]
     Active Substance: TERIPARATIDE
     Dosage: OTHER STRENGTH : 250 MCG/ML;?OTHER QUANTITY : 20 MCG;?
     Route: 058
     Dates: start: 202409
  2. FORTEO [Concomitant]
     Active Substance: TERIPARATIDE

REACTIONS (2)
  - Staphylococcal infection [None]
  - Staphylococcal infection [None]
